FAERS Safety Report 13444933 (Version 2)
Quarter: 2017Q3

REPORT INFORMATION
  Report Type: Spontaneous
  Country: RU (occurrence: RU)
  Receive Date: 20170414
  Receipt Date: 20170811
  Transmission Date: 20171127
  Serious: Yes (Hospitalization, Other)
  Sender: FDA-Public Use
  Company Number: RU-ASTRAZENECA-2017SE38095

PATIENT
  Age: 64 Year
  Sex: Female
  Weight: 70 kg

DRUGS (9)
  1. DIABETON MB [Concomitant]
     Active Substance: GLICLAZIDE
  2. ZOCARDIS [Concomitant]
  3. BRILINTA [Suspect]
     Active Substance: TICAGRELOR
     Indication: ANGINA UNSTABLE
     Route: 048
     Dates: start: 20161215
  4. CARVEDILOL. [Concomitant]
     Active Substance: CARVEDILOL
  5. HEPARIN [Concomitant]
     Active Substance: HEPARIN SODIUM
  6. ASPIRIN. [Concomitant]
     Active Substance: ASPIRIN
  7. LISINOPRIL. [Concomitant]
     Active Substance: LISINOPRIL
  8. METOPROLOL. [Concomitant]
     Active Substance: METOPROLOL
  9. CORDARONE [Concomitant]
     Active Substance: AMIODARONE HYDROCHLORIDE

REACTIONS (5)
  - Tachycardia [Recovered/Resolved]
  - Epistaxis [Recovering/Resolving]
  - Oedema [Recovered/Resolved]
  - Blood pressure increased [Recovered/Resolved]
  - Contusion [Recovered/Resolved]

NARRATIVE: CASE EVENT DATE: 201702
